FAERS Safety Report 5494491-5 (Version None)
Quarter: 2007Q4

REPORT INFORMATION
  Report Type: 
  Country: None (occurrence: None)
  Receive Date: 20071024
  Receipt Date: 20071018
  Transmission Date: 20080405
  Serious: Yes (Death, Life-Threatening, Hospitalization)
  Sender: FDA-Public Use
  Company Number: US-AMGEN-US239706

PATIENT
  Sex: Female

DRUGS (21)
  1. AMG 531 [Suspect]
     Indication: THROMBOCYTOPENIA
     Route: 058
     Dates: start: 20070809, end: 20070809
  2. NEULASTA [Suspect]
     Indication: CHEMOTHERAPY
     Route: 058
     Dates: start: 20070809, end: 20070809
  3. DOXORUBICIN HYDROCHLORIDE [Concomitant]
     Route: 065
  4. PREDNISONE [Concomitant]
     Route: 065
  5. RITUXIMAB [Concomitant]
     Route: 065
  6. CYCLOPHOSPHAMIDE [Concomitant]
     Route: 065
  7. VINCRISTINE [Concomitant]
     Route: 065
  8. ACYCLOVIR [Concomitant]
     Route: 065
  9. COMPAZINE [Concomitant]
     Route: 065
  10. PANTOPRAZOLE SODIUM [Concomitant]
     Route: 065
  11. CITALOPRAM HYDROBROMIDE [Concomitant]
     Route: 065
  12. AVELOX [Concomitant]
     Route: 065
  13. FLUCONAZOLE [Concomitant]
     Route: 065
  14. AMBIEN [Concomitant]
     Route: 065
  15. LORAZEPAM [Concomitant]
     Route: 065
  16. FLAGYL [Concomitant]
     Route: 047
  17. LASIX [Concomitant]
     Route: 048
  18. ZOSYN [Concomitant]
     Route: 042
  19. COREG [Concomitant]
     Route: 048
  20. LISINOPRIL [Concomitant]
     Route: 048
  21. SPIRIVA [Concomitant]
     Route: 055

REACTIONS (2)
  - CONVULSION [None]
  - GASTROINTESTINAL HAEMORRHAGE [None]
